FAERS Safety Report 16595915 (Version 2)
Quarter: 2020Q2

REPORT INFORMATION
  Report Type: Report from Study
  Country: FR (occurrence: FR)
  Receive Date: 20190719
  Receipt Date: 20200616
  Transmission Date: 20200713
  Serious: Yes (Death, Hospitalization)
  Sender: FDA-Public Use
  Company Number: FR-ROCHE-2357443

PATIENT
  Age: 78 Year
  Sex: Male

DRUGS (5)
  1. HARVONI [Suspect]
     Active Substance: LEDIPASVIR\SOFOSBUVIR
     Indication: VIRAL HEPATITIS CARRIER
     Route: 048
     Dates: start: 20151007, end: 20151230
  2. RIBAVIRIN. [Suspect]
     Active Substance: RIBAVIRIN
     Indication: VIRAL HEPATITIS CARRIER
     Route: 048
     Dates: start: 20151007, end: 20151230
  3. FUROSEMIDE. [Concomitant]
     Active Substance: FUROSEMIDE
     Dosage: 20 MG, QD
     Route: 065
     Dates: start: 20130102
  4. BISOPROLOL [Concomitant]
     Active Substance: BISOPROLOL
     Dosage: 10 MG, QD
     Route: 065
     Dates: start: 20120726
  5. VALSARTAN. [Concomitant]
     Active Substance: VALSARTAN
     Dosage: 20 MG, QD
     Route: 065
     Dates: start: 20130102

REACTIONS (1)
  - Hepatocellular carcinoma [Fatal]

NARRATIVE: CASE EVENT DATE: 20160220
